FAERS Safety Report 10377872 (Version 3)
Quarter: 2015Q1

REPORT INFORMATION
  Report Type: Report from Study
  Country: CN (occurrence: CN)
  Receive Date: 20140812
  Receipt Date: 20150113
  Transmission Date: 20150720
  Serious: Yes (Death, Hospitalization)
  Sender: FDA-Public Use
  Company Number: PHHY2014CN098029

PATIENT
  Age: 47 Year
  Sex: Male

DRUGS (1)
  1. GLIVEC [Suspect]
     Active Substance: IMATINIB MESYLATE
     Indication: ACUTE LYMPHOCYTIC LEUKAEMIA
     Dosage: 400 MG, QD
     Route: 048
     Dates: start: 20130607

REACTIONS (5)
  - Death [Fatal]
  - Sepsis [Unknown]
  - Lung infection [Unknown]
  - Septic shock [Unknown]
  - Multi-organ failure [Unknown]

NARRATIVE: CASE EVENT DATE: 20140807
